FAERS Safety Report 4816165-3 (Version None)
Quarter: 2005Q4

REPORT INFORMATION
  Report Type: 
  Country: None (occurrence: None)
  Receive Date: 20051026
  Receipt Date: 20051017
  Transmission Date: 20060501
  Serious: Yes (Hospitalization)
  Sender: FDA-Public Use
  Company Number: CFX20050025

PATIENT
  Age: 79 Year
  Sex: Female

DRUGS (14)
  1. CIPROFLOXACIN [Suspect]
     Indication: WOUND INFECTION
     Dosage: 500 MG BID PO
     Route: 048
     Dates: start: 20040715
  2. LEVOTHYROXINE [Suspect]
     Indication: HYPOTHYROIDISM
     Dosage: 150 UG DAILY PO
     Route: 048
     Dates: start: 20040101
  3. HYDROXYCHLOROQUINE SULFATE [Concomitant]
  4. ZUCLOPENTHIXOL [Concomitant]
  5. ENALAPRIL MALEATE [Concomitant]
  6. BUMETANIDE [Concomitant]
  7. PREDNISOLONE [Concomitant]
  8. ACETYLCYSTEINE [Concomitant]
  9. IPRATROPIUM BROMIDE [Concomitant]
  10. SALBUTAMOL [Concomitant]
  11. NYSTATIN [Concomitant]
  12. FOLIC ACID [Concomitant]
  13. LACTULOSE [Concomitant]
  14. ACETAMINOPHEN [Concomitant]

REACTIONS (4)
  - CONDITION AGGRAVATED [None]
  - DRUG EFFECT DECREASED [None]
  - DRUG INTERACTION [None]
  - HYPOTHYROIDISM [None]
